FAERS Safety Report 8583661 (Version 2)
Quarter: 2020Q3

REPORT INFORMATION
  Report Type: Report from Study
  Country: DE (occurrence: DE)
  Receive Date: 20120529
  Receipt Date: 20120706
  Transmission Date: 20201105
  Serious: Yes (Other)
  Sender: FDA-Public Use
  Company Number: DE-ROCHE-1072284

PATIENT
  Sex: Female

DRUGS (2)
  1. IBANDRONIC ACID. [Suspect]
     Active Substance: IBANDRONIC ACID
     Indication: OSTEOPOROSIS
     Route: 042
     Dates: start: 20100414, end: 20100817
  2. CALCICARE?D3 [Concomitant]
     Indication: OSTEOPOROSIS
     Route: 065
     Dates: start: 20100719

REACTIONS (2)
  - Nausea [Unknown]
  - Cardiac disorder [Unknown]
